FAERS Safety Report 6639962-0 (Version None)
Quarter: 2010Q1

REPORT INFORMATION
  Report Type: 
  Country: None (occurrence: None)
  Receive Date: 20100302
  Receipt Date: 20091209
  Transmission Date: 20100710
  Serious: No
  Sender: FDA-Public Use
  Company Number: 2009263819

PATIENT
  Sex: Female

DRUGS (3)
  1. TOVIAZ [Suspect]
     Indication: BLADDER DISORDER
     Dosage: 8 MG
  2. DETROL [Suspect]
     Dosage: 4 MG
  3. DARIFENACIN [Suspect]
     Dosage: 15 MG

REACTIONS (2)
  - BLADDER DISORDER [None]
  - DRUG INEFFECTIVE [None]
